FAERS Safety Report 17450145 (Version 1)
Quarter: 2020Q1

REPORT INFORMATION
  Report Type: Spontaneous
  Country: US (occurrence: US)
  Receive Date: 20200218
  Receipt Date: 20200218
  Transmission Date: 20200409
  Serious: Yes (Disabling)
  Sender: FDA-Public Use
  Company Number: None

PATIENT
  Age: 18 Year
  Sex: Male
  Weight: 99 kg

DRUGS (1)
  1. BEAST SARMS [Suspect]
     Active Substance: DIETARY SUPPLEMENT
     Indication: MUSCLE HYPERTROPHY
     Dosage: ?          QUANTITY:1 CAPSULE(S);?

REACTIONS (1)
  - Testicular atrophy [None]

NARRATIVE: CASE EVENT DATE: 20200112
